FAERS Safety Report 9391260 (Version 2)
Quarter: 2013Q3

REPORT INFORMATION
  Report Type: Spontaneous
  Country: US (occurrence: None)
  Receive Date: 20130705
  Receipt Date: 20130806
  Transmission Date: 20140515
  Serious: Yes (Hospitalization)
  Sender: FDA-Public Use
  Company Number: SYM-2013-05234

PATIENT
  Age: 49 Year
  Sex: Female

DRUGS (1)
  1. XENAZINE [Suspect]
     Indication: DYSTONIA
     Route: 048
     Dates: start: 20100506

REACTIONS (4)
  - Hypertension [None]
  - Gastrointestinal infection [None]
  - Vomiting [None]
  - Diarrhoea [None]
